FAERS Safety Report 7682218-8 (Version None)
Quarter: 2011Q3

REPORT INFORMATION
  Report Type: 
  Country: None (occurrence: None)
  Receive Date: 20110815
  Receipt Date: 20110812
  Transmission Date: 20111222
  Serious: No
  Sender: FDA-Public Use
  Company Number: US-PFIZER INC-2011186263

PATIENT
  Sex: Female
  Weight: 62.585 kg

DRUGS (1)
  1. ADVIL LIQUI-GELS [Suspect]
     Indication: ARTHRALGIA
     Dosage: 600 MG, 1X/DAY
     Route: 048
     Dates: start: 20110701

REACTIONS (1)
  - DRUG INEFFECTIVE [None]
